FAERS Safety Report 7529774-8 (Version None)
Quarter: 2011Q2

REPORT INFORMATION
  Report Type: 
  Country: None (occurrence: None)
  Receive Date: 20110520
  Receipt Date: 20110124
  Transmission Date: 20111010
  Serious: Yes (Life-Threatening, Hospitalization)
  Sender: FDA-Public Use
  Company Number: WAES 1101USA02589

PATIENT
  Sex: Female

DRUGS (4)
  1. EMEND [Suspect]
     Indication: PROPHYLAXIS OF NAUSEA AND VOMITING
     Dosage: PO
     Route: 048
     Dates: start: 20110103
  2. EMEND [Suspect]
     Indication: VOMITING
     Dosage: PO
     Route: 048
     Dates: start: 20110103
  3. CYCLOPHOSPHAMIDE [Concomitant]
  4. TAXOTERE [Concomitant]

REACTIONS (1)
  - HYPONATRAEMIA [None]
